FAERS Safety Report 11060818 (Version 3)
Quarter: 2015Q2

REPORT INFORMATION
  Report Type: Report from Study
  Country: DE (occurrence: DE)
  Receive Date: 20150423
  Receipt Date: 20150618
  Transmission Date: 20150821
  Serious: Yes (Hospitalization, Other)
  Sender: FDA-Public Use
  Company Number: US-ASTRAZENECA-2015SE36952

PATIENT
  Age: 4 Month
  Sex: Female
  Weight: 4.6 kg

DRUGS (7)
  1. COLECALCIFEROL W/SODIUM FLUORIDE [Concomitant]
     Indication: PRODUCT USED FOR UNKNOWN INDICATION
     Route: 048
     Dates: start: 20140820, end: 20141119
  2. SYNAGIS [Suspect]
     Active Substance: PALIVIZUMAB
     Indication: IMMUNODEFICIENCY
     Route: 030
     Dates: start: 20141023, end: 20141023
  3. SYNAGIS [Suspect]
     Active Substance: PALIVIZUMAB
     Indication: IMMUNODEFICIENCY
     Route: 030
     Dates: start: 20141119, end: 20141119
  4. SYNAGIS [Suspect]
     Active Substance: PALIVIZUMAB
     Indication: IMMUNODEFICIENCY
     Route: 030
     Dates: start: 20140923, end: 20140923
  5. SYNAGIS [Suspect]
     Active Substance: PALIVIZUMAB
     Indication: PROPHYLAXIS
     Route: 030
     Dates: start: 20141119, end: 20141119
  6. SYNAGIS [Suspect]
     Active Substance: PALIVIZUMAB
     Indication: PROPHYLAXIS
     Route: 030
     Dates: start: 20140923, end: 20140923
  7. SYNAGIS [Suspect]
     Active Substance: PALIVIZUMAB
     Indication: PROPHYLAXIS
     Route: 030
     Dates: start: 20141023, end: 20141023

REACTIONS (5)
  - Apnoeic attack [Recovered/Resolved]
  - Agitation [Unknown]
  - Pyrexia [Recovered/Resolved]
  - Urticaria [Recovered/Resolved]
  - Rash [Unknown]

NARRATIVE: CASE EVENT DATE: 20141023
